FAERS Safety Report 16358892 (Version 3)
Quarter: 2019Q2

REPORT INFORMATION
  Report Type: Spontaneous
  Country: US (occurrence: US)
  Receive Date: 20190527
  Receipt Date: 20190630
  Transmission Date: 20190711
  Serious: Yes (Other)
  Sender: FDA-Public Use
  Company Number: US-AMGEN-USASP2019081279

PATIENT
  Age: 76 Year
  Sex: Female

DRUGS (3)
  1. OSCAL [CALCIUM CARBONATE] [Concomitant]
     Dosage: 1500 MILLIGRAM, QD
  2. VITAMIN D [ERGOCALCIFEROL] [Concomitant]
     Active Substance: ERGOCALCIFEROL
     Dosage: 2000 IU, UNK
  3. PROLIA [Suspect]
     Active Substance: DENOSUMAB
     Indication: OSTEOPOROSIS POSTMENOPAUSAL
     Dosage: 60 MILLIGRAM, Q2WK
     Route: 065
     Dates: start: 201801

REACTIONS (6)
  - Meniere^s disease [Unknown]
  - Malaise [Unknown]
  - Alopecia [Unknown]
  - Pain [Unknown]
  - Pain in jaw [Recovering/Resolving]
  - Throat tightness [Unknown]

NARRATIVE: CASE EVENT DATE: 2018
